FAERS Safety Report 10614342 (Version 2)
Quarter: 2014Q4

REPORT INFORMATION
  Report Type: Spontaneous
  Country: JP (occurrence: JP)
  Receive Date: 20141128
  Receipt Date: 20141128
  Transmission Date: 20150529
  Serious: Yes (Other)
  Sender: FDA-Public Use
  Company Number: PHHY2010JP096666

PATIENT
  Age: 82 Year
  Sex: Female

DRUGS (4)
  1. GLIVEC [Suspect]
     Active Substance: IMATINIB MESYLATE
     Dosage: 300 MG, QD
     Route: 048
     Dates: end: 201102
  2. GLIVEC [Suspect]
     Active Substance: IMATINIB MESYLATE
     Indication: CHRONIC MYELOID LEUKAEMIA
     Dosage: 400 MG, QD
     Route: 048
     Dates: start: 200604
  3. HYDROXYUREA. [Concomitant]
     Active Substance: HYDROXYUREA
     Indication: PRODUCT USED FOR UNKNOWN INDICATION
     Route: 065
  4. HYDROXYUREA. [Concomitant]
     Active Substance: HYDROXYUREA
     Dosage: UNK
     Route: 065

REACTIONS (16)
  - Neutrophil count decreased [Unknown]
  - Drug intolerance [Unknown]
  - Cardiac failure [Recovered/Resolved]
  - Thrombocytopenia [Unknown]
  - Blood urea increased [Unknown]
  - Nausea [Unknown]
  - Therapeutic response decreased [Unknown]
  - Electrocardiogram QT prolonged [Unknown]
  - Platelet count decreased [Recovered/Resolved]
  - Seizure [Unknown]
  - Pneumonia [Recovered/Resolved]
  - Vomiting [Unknown]
  - Oedema [Unknown]
  - Stomatitis [Unknown]
  - Leukaemia recurrent [Unknown]
  - Blood creatinine increased [Unknown]

NARRATIVE: CASE EVENT DATE: 200604
